FAERS Safety Report 23595032 (Version 2)
Quarter: 2024Q1

REPORT INFORMATION
  Report Type: Spontaneous
  Country: IT (occurrence: IT)
  Receive Date: 20240305
  Receipt Date: 20240326
  Transmission Date: 20240409
  Serious: Yes (Hospitalization)
  Sender: FDA-Public Use
  Company Number: IT-SUN PHARMACEUTICAL INDUSTRIES LTD-2024RR-434410

PATIENT
  Sex: Female

DRUGS (4)
  1. ODOMZO [Suspect]
     Active Substance: SONIDEGIB
     Indication: Basal cell carcinoma
     Dosage: UNK
     Route: 065
     Dates: start: 20230616
  2. NEXIUM [Concomitant]
     Active Substance: ESOMEPRAZOLE MAGNESIUM
     Indication: Gastrointestinal disorder
     Dosage: UNK
     Route: 065
  3. Tardifer [Concomitant]
     Indication: Mineral supplementation
     Dosage: UNK
     Route: 065
  4. BECLOMETHASONE DIPROPIONATE\FORMOTEROL FUMARATE\GLYCOPYRROLATE [Concomitant]
     Active Substance: BECLOMETHASONE DIPROPIONATE\FORMOTEROL FUMARATE\GLYCOPYRROLATE
     Indication: Respiratory distress
     Dosage: 2 DOSAGE FORM, DAILY
     Route: 045

REACTIONS (3)
  - Pulmonary embolism [Not Recovered/Not Resolved]
  - Pain in extremity [Unknown]
  - Movement disorder [Unknown]

NARRATIVE: CASE EVENT DATE: 20240128
